FAERS Safety Report 11487491 (Version 1)
Quarter: 2015Q3

REPORT INFORMATION
  Report Type: Spontaneous
  Country: US (occurrence: US)
  Receive Date: 20150910
  Receipt Date: 20150910
  Transmission Date: 20151125
  Serious: No
  Sender: FDA-Public Use
  Company Number: US-ROCHE-1143604

PATIENT
  Sex: Male

DRUGS (7)
  1. RIBASPHERE [Suspect]
     Active Substance: RIBAVIRIN
     Dosage: IN TWO DIVIDED DOSES
     Route: 048
     Dates: start: 20140526
  2. SOVALDI [Suspect]
     Active Substance: SOFOSBUVIR
     Indication: CHRONIC HEPATITIS C
     Route: 048
     Dates: start: 20140526
  3. PEGASYS [Suspect]
     Active Substance: PEGINTERFERON ALFA-2A
     Route: 058
     Dates: start: 20140526
  4. RIBAVIRIN. [Suspect]
     Active Substance: RIBAVIRIN
     Indication: CHRONIC HEPATITIS C
     Route: 048
     Dates: start: 20120810, end: 20121024
  5. PEGASYS [Suspect]
     Active Substance: PEGINTERFERON ALFA-2A
     Indication: CHRONIC HEPATITIS C
     Route: 058
     Dates: start: 20120810, end: 20121024
  6. INCIVEK [Suspect]
     Active Substance: TELAPREVIR
     Indication: CHRONIC HEPATITIS C
     Route: 065
     Dates: start: 20120810, end: 20121024
  7. RIBASPHERE [Suspect]
     Active Substance: RIBAVIRIN
     Indication: CHRONIC HEPATITIS C
     Dosage: IN DIVIDED DOSES 600/600
     Route: 048
     Dates: start: 20120810, end: 20121024

REACTIONS (15)
  - Fluid intake reduced [Unknown]
  - Pruritus generalised [Unknown]
  - Chills [Unknown]
  - Paraesthesia oral [Unknown]
  - Scab [Unknown]
  - Inappropriate schedule of drug administration [Unknown]
  - Pyrexia [Unknown]
  - Glossodynia [Unknown]
  - Pruritus [Unknown]
  - Headache [Unknown]
  - Influenza like illness [Unknown]
  - Hypoaesthesia oral [Unknown]
  - Diarrhoea [Unknown]
  - Viral load increased [Unknown]
  - Dysgeusia [Unknown]
